FAERS Safety Report 8495339 (Version 2)
Quarter: 2012Q4

REPORT INFORMATION
  Report Type: 
  Country: US (occurrence: US)
  Receive Date: 20120405
  Receipt Date: 20121226
  Transmission Date: 20130627
  Serious: Yes (Death, Hospitalization)
  Sender: FDA-Public Use
  Company Number: US-BAYER-2012-032306

PATIENT
  Age: 47 Year
  Sex: Female

DRUGS (7)
  1. BEYAZ [Suspect]
     Dosage: UNK
     Dates: start: 20110427, end: 20110512
  2. YASMIN [Suspect]
     Dosage: UNK
     Dates: start: 20090408, end: 201004
  3. OCELLA [Suspect]
     Dosage: UNK
     Dates: start: 20100420, end: 20100518
  4. VITAMIN [Concomitant]
  5. VITAMIN D [Concomitant]
  6. CALCIUM [Concomitant]
  7. YAZ [Suspect]

REACTIONS (4)
  - Cerebrovascular accident [Fatal]
  - Injury [Fatal]
  - Cerebral infarction [Fatal]
  - Pain [None]
